FAERS Safety Report 5581129-1 (Version None)
Quarter: 2007Q4

REPORT INFORMATION
  Report Type: 
  Country: None (occurrence: None)
  Receive Date: 20071130
  Receipt Date: 20070716
  Transmission Date: 20080405
  Serious: No
  Sender: FDA-Public Use
  Company Number: US200707004057

PATIENT
  Age: 59 Year
  Sex: Male
  Weight: 117.9 kg

DRUGS (5)
  1. BYETTA [Suspect]
     Indication: TYPE 2 DIABETES MELLITUS
     Dosage: 5 UG, 2/D, 10 UG, 2/D, SUBCUTANEOUS
     Route: 058
     Dates: start: 20060101, end: 20060101
  2. BYETTA [Suspect]
     Indication: TYPE 2 DIABETES MELLITUS
     Dosage: 5 UG, 2/D, 10 UG, 2/D, SUBCUTANEOUS
     Route: 058
     Dates: start: 20060101
  3. ACTOS [Concomitant]
  4. GLUCOTROL XL [Concomitant]
  5. CADUET (AMLODIPINE BESILATE, ATORVASTATIN CALCIUM) [Concomitant]

REACTIONS (8)
  - ABDOMINAL PAIN UPPER [None]
  - BLOOD GLUCOSE DECREASED [None]
  - BLOOD GLUCOSE FLUCTUATION [None]
  - DIARRHOEA [None]
  - FEELING COLD [None]
  - GASTROENTERITIS VIRAL [None]
  - HYPERHIDROSIS [None]
  - TREMOR [None]
